FAERS Safety Report 17774436 (Version 1)
Quarter: 2020Q2

REPORT INFORMATION
  Report Type: Spontaneous
  Country: US (occurrence: US)
  Receive Date: 20200513
  Receipt Date: 20200513
  Transmission Date: 20200714
  Serious: No
  Sender: FDA-Public Use
  Company Number: US-ASTRAZENECA-2020SE61700

PATIENT
  Sex: Female

DRUGS (5)
  1. LYNPARZA [Suspect]
     Active Substance: OLAPARIB
     Indication: BREAST CANCER FEMALE
     Route: 048
     Dates: start: 202004
  2. XANAX [Concomitant]
     Active Substance: ALPRAZOLAM
  3. VITAMINS [Concomitant]
     Active Substance: VITAMINS
  4. LYNPARZA [Suspect]
     Active Substance: OLAPARIB
     Indication: BREAST CANCER FEMALE
     Route: 048
     Dates: start: 202004
  5. CURCUMIN [Concomitant]
     Active Substance: CURCUMIN

REACTIONS (1)
  - Neutrophil count abnormal [Unknown]
